FAERS Safety Report 4725188-4 (Version None)
Quarter: 2005Q3

REPORT INFORMATION
  Report Type: 
  Country: None (occurrence: None)
  Receive Date: 20050721
  Receipt Date: 20050610
  Transmission Date: 20060218
  Serious: No
  Sender: FDA-Public Use
  Company Number: 2005SP001338

PATIENT
  Age: 82 Year
  Sex: Female
  Weight: 73.0291 kg

DRUGS (5)
  1. LUNESTA [Suspect]
     Indication: INSOMNIA
     Dosage: 2 MG;HS; ORAL
     Route: 048
     Dates: start: 20050609
  2. KLONOPIN [Concomitant]
  3. TENORMIN [Concomitant]
  4. LOTREL [Concomitant]
  5. NEURONTIN [Concomitant]

REACTIONS (3)
  - DRUG INEFFECTIVE [None]
  - HEADACHE [None]
  - INSOMNIA [None]
